FAERS Safety Report 24181370 (Version 1)
Quarter: 2024Q3

REPORT INFORMATION
  Report Type: Spontaneous
  Country: US (occurrence: US)
  Receive Date: 20240807
  Receipt Date: 20240807
  Transmission Date: 20241016
  Serious: No
  Sender: AILEX PHARMACEUTICALS
  Company Number: AP-2024-US-5859

PATIENT
  Age: 9 Year
  Sex: Female

DRUGS (1)
  1. CROMOLYN SODIUM [Suspect]
     Active Substance: CROMOLYN SODIUM
     Indication: Mastocytosis
     Route: 048
     Dates: start: 202401

REACTIONS (1)
  - Throat irritation [Unknown]
